FAERS Safety Report 8505249-4 (Version None)
Quarter: 2012Q3

REPORT INFORMATION
  Report Type: 
  Country: None (occurrence: None)
  Receive Date: 20120712
  Receipt Date: 20120709
  Transmission Date: 20120928
  Serious: Yes (Other)
  Sender: FDA-Public Use
  Company Number: GR-PFIZER INC-2012164910

PATIENT
  Sex: Male

DRUGS (3)
  1. LIPITOR [Suspect]
     Dosage: 20 MG, UNK
  2. FLUOXETINE [Interacting]
     Dosage: UNK
     Dates: end: 20120314
  3. LIPITOR [Interacting]
     Dosage: 10 MG, UNK
     Dates: end: 20120314

REACTIONS (3)
  - AMYLASE INCREASED [None]
  - BLOOD CHOLESTEROL INCREASED [None]
  - DRUG INTERACTION [None]
